FAERS Safety Report 20028262 (Version 1)
Quarter: 2021Q4

REPORT INFORMATION
  Report Type: Spontaneous
  Country: US (occurrence: None)
  Receive Date: 20211103
  Receipt Date: 20211103
  Transmission Date: 20220303
  Serious: Yes (Other)
  Sender: FDA-Public Use
  Company Number: US-Hikma Pharmaceuticals USA Inc.-US-H14001-21-04686

PATIENT
  Age: 71 Year
  Sex: Male

DRUGS (9)
  1. METHYLPREDNISOLONE [Suspect]
     Active Substance: METHYLPREDNISOLONE
     Indication: Stevens-Johnson syndrome
     Dosage: UNKNOWN
     Route: 042
  2. METHYLPREDNISOLONE [Suspect]
     Active Substance: METHYLPREDNISOLONE
     Indication: Toxic epidermal necrolysis
  3. ASPIRIN [Concomitant]
     Active Substance: ASPIRIN
     Indication: Product used for unknown indication
     Dosage: UNKNOWN
     Route: 065
  4. PROPRANOLOL [Concomitant]
     Active Substance: PROPRANOLOL HYDROCHLORIDE
     Indication: Product used for unknown indication
     Dosage: UNKNOWN
     Route: 065
  5. LOSARTAN [Concomitant]
     Active Substance: LOSARTAN
     Indication: Product used for unknown indication
     Dosage: UNKNOWN
     Route: 065
  6. ENFORTUMAB VEDOTIN [Concomitant]
     Active Substance: ENFORTUMAB VEDOTIN
     Indication: Chemotherapy
     Route: 065
  7. CEFEPIME [Concomitant]
     Active Substance: CEFEPIME HYDROCHLORIDE
     Indication: Antibiotic therapy
     Dosage: UNKNOWN
     Route: 065
  8. ACYCLOVIR [Concomitant]
     Active Substance: ACYCLOVIR
     Indication: Antibiotic therapy
     Dosage: UNKNOWN
     Route: 065
  9. MUPIROCIN [Concomitant]
     Active Substance: MUPIROCIN
     Indication: Antibiotic therapy
     Dosage: UNKNOWN
     Route: 065

REACTIONS (7)
  - Hypotension [Unknown]
  - Rash [Unknown]
  - Acute kidney injury [Unknown]
  - Atrial fibrillation [Unknown]
  - Hyponatraemia [Unknown]
  - Hyperglycaemia [Unknown]
  - Metabolic acidosis [Unknown]
